FAERS Safety Report 6522300-1 (Version None)
Quarter: 2009Q4

REPORT INFORMATION
  Report Type: 
  Country: None (occurrence: None)
  Receive Date: 20091230
  Receipt Date: 20091222
  Transmission Date: 20100525
  Serious: Yes (Hospitalization, Other)
  Sender: FDA-Public Use
  Company Number: A0836851A

PATIENT
  Sex: Female
  Weight: 64 kg

DRUGS (2)
  1. SERETIDE [Suspect]
     Route: 055
     Dates: start: 20060101
  2. PARACETAMOL [Concomitant]
     Dosage: 1TAB PER DAY
     Dates: start: 20081201

REACTIONS (4)
  - HYPERAEMIA [None]
  - INTESTINAL OPERATION [None]
  - PRURITUS [None]
  - RENAL SURGERY [None]
